FAERS Safety Report 8417160-8 (Version None)
Quarter: 2012Q2

REPORT INFORMATION
  Report Type: 
  Country: None (occurrence: None)
  Receive Date: 20120606
  Receipt Date: 20120525
  Transmission Date: 20120825
  Serious: Yes (Other)
  Sender: FDA-Public Use
  Company Number: US-PFIZER INC-2012127265

PATIENT
  Sex: Female
  Weight: 68.5 kg

DRUGS (3)
  1. PREMARIN [Suspect]
     Indication: ATROPHIC VULVOVAGINITIS
     Dosage: 0.3 MG, UNK
  2. PREMARIN [Suspect]
     Indication: HORMONE REPLACEMENT THERAPY
     Dosage: 0.625 MG, 1X/DAY
     Route: 048
     Dates: start: 19900101, end: 20120501
  3. PREMARIN [Suspect]
     Dosage: 0.3 MG, 1X/DAY
     Route: 048
     Dates: start: 20120501

REACTIONS (22)
  - FEELING ABNORMAL [None]
  - ANTINUCLEAR ANTIBODY POSITIVE [None]
  - ANTINUCLEAR ANTIBODY INCREASED [None]
  - NERVOUSNESS [None]
  - FLUSHING [None]
  - VISUAL IMPAIRMENT [None]
  - CHEST DISCOMFORT [None]
  - WITHDRAWAL SYNDROME [None]
  - VISION BLURRED [None]
  - SPEECH DISORDER [None]
  - BACK PAIN [None]
  - MOOD ALTERED [None]
  - HYPERTENSION [None]
  - HEADACHE [None]
  - CHEST PAIN [None]
  - MUSCLE TIGHTNESS [None]
  - TINNITUS [None]
  - DISTURBANCE IN ATTENTION [None]
  - LYMPHADENOPATHY [None]
  - DIPLOPIA [None]
  - DIZZINESS [None]
  - RASH [None]
